FAERS Safety Report 20140759 (Version 1)
Quarter: 2021Q4

REPORT INFORMATION
  Report Type: Spontaneous
  Country: IT (occurrence: IT)
  Receive Date: 20211202
  Receipt Date: 20211202
  Transmission Date: 20220303
  Serious: Yes (Hospitalization)
  Sender: FDA-Public Use
  Company Number: IT-MYLANLABS-2021M1089366

PATIENT
  Sex: Male

DRUGS (11)
  1. LEVETIRACETAM [Suspect]
     Active Substance: LEVETIRACETAM
     Indication: Generalised tonic-clonic seizure
     Route: 065
  2. TOPIRAMATE [Suspect]
     Active Substance: TOPIRAMATE
     Indication: Generalised tonic-clonic seizure
     Dosage: UNK
     Route: 065
  3. CARBAMAZEPINE [Suspect]
     Active Substance: CARBAMAZEPINE
     Indication: Generalised tonic-clonic seizure
     Dosage: UNK
     Route: 065
  4. CLOBAZAM [Suspect]
     Active Substance: CLOBAZAM
     Indication: Generalised tonic-clonic seizure
     Dosage: UNK
     Route: 065
  5. PERAMPANEL [Suspect]
     Active Substance: PERAMPANEL
     Indication: Generalised tonic-clonic seizure
     Dosage: UNK
     Route: 065
  6. VALPROATE SODIUM [Suspect]
     Active Substance: VALPROATE SODIUM
     Indication: Generalised tonic-clonic seizure
     Dosage: UNK
     Route: 065
  7. LEUCOVORIN [Concomitant]
     Active Substance: LEUCOVORIN
     Indication: Product used for unknown indication
     Dosage: UNK
     Route: 065
  8. L DOPA [Concomitant]
     Active Substance: LEVODOPA
     Indication: Hyperphenylalaninaemia
     Dosage: UNK UNK, TID, 100/250MG 3 TIMES A DAY
     Route: 065
  9. L DOPA [Concomitant]
     Active Substance: LEVODOPA
     Dosage: DOSE INCREASED
     Route: 065
  10. L DOPA [Concomitant]
     Active Substance: LEVODOPA
     Dosage: UNK UNK, Q5D, 100/25 MG 5 TIMES A DAY
     Route: 065
  11. L DOPA [Concomitant]
     Active Substance: LEVODOPA
     Dosage: 400 MILLIGRAM, QD
     Route: 065

REACTIONS (1)
  - Drug ineffective [Unknown]
